FAERS Safety Report 14561982 (Version 1)
Quarter: 2018Q1

REPORT INFORMATION
  Report Type: Spontaneous
  Country: US (occurrence: US)
  Receive Date: 20180221
  Receipt Date: 20180221
  Transmission Date: 20180509
  Serious: Yes (Hospitalization)
  Sender: FDA-Public Use
  Company Number: None

PATIENT
  Age: 54 Year
  Sex: Male

DRUGS (7)
  1. TACROLIMUS CAP 1MG CAPSULES [Suspect]
     Active Substance: TACROLIMUS
     Indication: RENAL TRANSPLANT
     Dosage: 3 CAPSULES QD (2 QAM + 1 1PM)
     Route: 048
     Dates: start: 20170120
  2. GABAPENTIN. [Concomitant]
     Active Substance: GABAPENTIN
  3. PANTOPRAZOLE [Concomitant]
     Active Substance: PANTOPRAZOLE
  4. TACROLIMUS 0.5MG CAPSULES [Suspect]
     Active Substance: TACROLIMUS
     Indication: RENAL TRANSPLANT
     Route: 048
     Dates: start: 20170120
  5. MYCOPHENOLATE 500MG TABLETS [Suspect]
     Active Substance: MYCOPHENOLIC ACID
     Indication: RENAL TRANSPLANT
     Route: 048
     Dates: start: 20170120
  6. PREDNISONE. [Concomitant]
     Active Substance: PREDNISONE
  7. SMZ/TMP DS [Concomitant]
     Active Substance: SULFAMETHOXAZOLE\TRIMETHOPRIM

REACTIONS (2)
  - Influenza [None]
  - Drug dose omission [None]

NARRATIVE: CASE EVENT DATE: 20180129
